FAERS Safety Report 4633457-1 (Version None)
Quarter: 2005Q2

REPORT INFORMATION
  Report Type: 
  Country: None (occurrence: None)
  Receive Date: 20050412
  Receipt Date: 20050330
  Transmission Date: 20051028
  Serious: Yes (Life-Threatening, Other)
  Sender: FDA-Public Use
  Company Number: HQWYE647304APR05

PATIENT
  Age: 28 Year
  Sex: Male

DRUGS (3)
  1. EFFEXOR [Suspect]
     Dosage: 150 MG 1X PER 1 DAY
  2. EPINEPHRINE [Suspect]
     Dosage: 1 MG 1X PER 1 TOT
  3. COPHENYLCAINE (LIDOCAINE HYDROCHLORIDE/PHENYLEPHRINE HYDROCHLORIDE, ) [Suspect]
     Dosage: 5 ML 1X PER 1 TOT
     Route: 045

REACTIONS (2)
  - DRUG INTERACTION [None]
  - SUPRAVENTRICULAR TACHYCARDIA [None]
